FAERS Safety Report 8962309 (Version 2)
Quarter: 2013Q1

REPORT INFORMATION
  Report Type: Spontaneous
  Country: None (occurrence: None)
  Receive Date: 20121203
  Receipt Date: 20130215
  Transmission Date: 20140127
  Serious: Yes (Other)
  Sender: FDA-Public Use
  Company Number: ACO_33114_2012

PATIENT
  Age: 69 Year
  Sex: Female
  Weight: 52.2 kg

DRUGS (13)
  1. AMPYRA (DALFAMPRIDINE) TABLET, 10MG [Suspect]
     Indication: GAIT DISTURBANCE
     Route: 048
     Dates: start: 2010, end: 2012
  2. BACLOFEN (BACLOFEN) [Concomitant]
  3. OMEPRAZOLE (OMEPRAZOLE) [Concomitant]
  4. ATENOLOL (ATENOLOL) [Concomitant]
  5. ASPIRIN (ACETYLSALICYLIC ACID) [Concomitant]
  6. CALCIUM +D (CALCIUM CARBONATE, COLECALCIFEROL) [Concomitant]
  7. FENOFIBRATE (FENOFIBRATE) [Concomitant]
  8. ZOCOR (SIMVASTATIN) [Concomitant]
  9. MOBIC (MELOXICAM) [Concomitant]
  10. LASIX (FUROSEMIDE) [Concomitant]
  11. CITALOPRAM HYDROBROMIDE (CITALOPRAM HYDROBROMIDE) [Concomitant]
  12. HYDROXYZINE HCL (HYDROXYZINE HYDROCHLORIDE) [Concomitant]
  13. VALACYCLOVIR HYDROCHLORIDE (VALACICLOVIR HYDROCHLORIDE) [Concomitant]

REACTIONS (2)
  - Renal failure chronic [None]
  - Inappropriate schedule of drug administration [None]
